FAERS Safety Report 5275490-5 (Version None)
Quarter: 2007Q1

REPORT INFORMATION
  Report Type: 
  Country: None (occurrence: None)
  Receive Date: 20070326
  Receipt Date: 20070315
  Transmission Date: 20070707
  Serious: Yes (Hospitalization)
  Sender: FDA-Public Use
  Company Number: GB-ROCHE-487834

PATIENT
  Age: 66 Year
  Sex: Female

DRUGS (2)
  1. CAPECITABINE [Suspect]
     Indication: BREAST CANCER
     Dosage: 1250 MG/M2 BID FOR 14 DAYS EVERY 3 WEEKS, INITIATED FOLLOWING COMPLETION OF EPIRUBICIN THERAPY AS P+
     Route: 048
  2. EPIRUBICIN [Suspect]
     Indication: BREAST CANCER
     Dosage: 100 MG/M2 ADMINISTERED EVERY 3 WEEKS FOR 4 CYCLES PRIOR TO START OF CAPECITABINE THERAPY AS PER PRO+
     Route: 042
     Dates: start: 20070111

REACTIONS (2)
  - INJECTION SITE INFECTION [None]
  - SKIN GRAFT [None]
